FAERS Safety Report 22290258 (Version 1)
Quarter: 2023Q2

REPORT INFORMATION
  Report Type: Report from Study
  Country: FR (occurrence: FR)
  Receive Date: 20230505
  Receipt Date: 20230505
  Transmission Date: 20230721
  Serious: Yes (Other)
  Sender: FDA-Public Use
  Company Number: FR-VER-202300014

PATIENT
  Age: 88 Year
  Sex: Male
  Weight: 67 kg

DRUGS (6)
  1. TRIPTORELIN PAMOATE [Suspect]
     Active Substance: TRIPTORELIN PAMOATE
     Indication: Prostate cancer
     Route: 030
     Dates: start: 2019
  2. VITAMIN D [Concomitant]
     Active Substance: VITAMIN D NOS
     Route: 065
     Dates: start: 20211203
  3. CALCIUM CARBONATE [Concomitant]
     Active Substance: CALCIUM CARBONATE
     Route: 065
  4. NUBEQA [Concomitant]
     Active Substance: DAROLUTAMIDE
     Route: 065
  5. FIRMAGON [Suspect]
     Active Substance: DEGARELIX ACETATE
     Route: 065
  6. ENANTONE LP [Suspect]
     Active Substance: LEUPROLIDE ACETATE
     Route: 065

REACTIONS (4)
  - Neoplasm progression [Unknown]
  - Drug ineffective [Unknown]
  - Prostatic specific antigen abnormal [Unknown]
  - Asthenia [Unknown]
